FAERS Safety Report 6369193-3 (Version None)
Quarter: 2009Q3

REPORT INFORMATION
  Report Type: 
  Country: None (occurrence: None)
  Receive Date: 20090903
  Receipt Date: 20090824
  Transmission Date: 20100115
  Serious: Yes (Other)
  Sender: FDA-Public Use
  Company Number: WSDF_00813

PATIENT
  Sex: Female
  Weight: 73.4 kg

DRUGS (2)
  1. WINRHO [Suspect]
     Indication: IDIOPATHIC THROMBOCYTOPENIC PURPURA
     Dosage: SEE IMAGE
     Dates: start: 20090406, end: 20090406
  2. ALTACE [Concomitant]

REACTIONS (13)
  - BACK PAIN [None]
  - CHEST DISCOMFORT [None]
  - CHILLS [None]
  - DYSPNOEA [None]
  - FATIGUE [None]
  - HAEMOLYSIS [None]
  - HOT FLUSH [None]
  - HYPERSENSITIVITY [None]
  - HYPERTENSION [None]
  - HYPOAESTHESIA [None]
  - INFUSION SITE PAIN [None]
  - PRURITUS [None]
  - URTICARIA [None]
